FAERS Safety Report 24076228 (Version 1)
Quarter: 2024Q3

REPORT INFORMATION
  Report Type: Spontaneous
  Country: US (occurrence: US)
  Receive Date: 20240711
  Receipt Date: 20240711
  Transmission Date: 20241017
  Serious: Yes (Other)
  Sender: ABBVIE
  Company Number: US-ABBVIE-5834423

PATIENT
  Sex: Female

DRUGS (1)
  1. HUMIRA [Suspect]
     Active Substance: ADALIMUMAB
     Indication: Psoriatic arthropathy
     Dosage: FORM STRENGTH: 40 MILLIGRAM
     Route: 058
     Dates: end: 2024

REACTIONS (4)
  - Ectopic pregnancy [Unknown]
  - Immunosuppression [Unknown]
  - Product administration interrupted [Not Recovered/Not Resolved]
  - Maternal exposure during pregnancy [Unknown]

NARRATIVE: CASE EVENT DATE: 20240101
